FAERS Safety Report 19139245 (Version 1)
Quarter: 2021Q2

REPORT INFORMATION
  Report Type: Spontaneous
  Country: US (occurrence: US)
  Receive Date: 20210414
  Receipt Date: 20210414
  Transmission Date: 20210717
  Serious: Yes (Hospitalization)
  Sender: FDA-Public Use
  Company Number: None

PATIENT
  Sex: Female

DRUGS (11)
  1. CLINDAMYCIN. [Concomitant]
     Active Substance: CLINDAMYCIN
  2. GABAPENTIN. [Concomitant]
     Active Substance: GABAPENTIN
  3. ZIRGAN [Concomitant]
     Active Substance: GANCICLOVIR
  4. PAROXETINE. [Concomitant]
     Active Substance: PAROXETINE
  5. HYDROCO/APAP [Concomitant]
     Active Substance: ACETAMINOPHEN\HYDROCODONE
  6. OFLOXACIN. [Concomitant]
     Active Substance: OFLOXACIN
  7. FLONASE ALGY [Concomitant]
  8. VITAMIN D [Concomitant]
     Active Substance: VITAMIN D NOS
  9. TOBRAMYCIN OP [Concomitant]
  10. WARFARIN [Concomitant]
     Active Substance: WARFARIN
  11. COPAXONE [Suspect]
     Active Substance: GLATIRAMER ACETATE
     Indication: MULTIPLE SCLEROSIS
     Route: 058
     Dates: start: 20170214

REACTIONS (1)
  - Herpes zoster [None]
